FAERS Safety Report 18368188 (Version 2)
Quarter: 2020Q4

REPORT INFORMATION
  Report Type: Spontaneous
  Country: US (occurrence: US)
  Receive Date: 20201009
  Receipt Date: 20201106
  Transmission Date: 20210114
  Serious: Yes (Other)
  Sender: FDA-Public Use
  Company Number: US-PFIZER INC-2020387389

PATIENT
  Age: 70 Year
  Sex: Male

DRUGS (3)
  1. ULTIMATE OMEGA [Concomitant]
     Indication: SUPPLEMENTATION THERAPY
  2. LIPITOR [Suspect]
     Active Substance: ATORVASTATIN CALCIUM
     Indication: HYPERCHOLESTEROLAEMIA
     Dosage: 40 MG
  3. LIPITOR [Suspect]
     Active Substance: ATORVASTATIN CALCIUM
     Indication: TYPE 2 DIABETES MELLITUS
     Dosage: 20 MG
     Dates: start: 20200922

REACTIONS (3)
  - Blood triglycerides increased [Unknown]
  - Glomerular filtration rate decreased [Recovered/Resolved]
  - Low density lipoprotein decreased [Unknown]

NARRATIVE: CASE EVENT DATE: 20200909
